FAERS Safety Report 16243674 (Version 1)
Quarter: 2019Q2

REPORT INFORMATION
  Report Type: Spontaneous
  Country: US (occurrence: US)
  Receive Date: 20190322
  Receipt Date: 20190322
  Transmission Date: 20190711
  Serious: No
  Sender: FDA-Public Use
  Company Number: None

PATIENT
  Sex: Female

DRUGS (7)
  1. OCALIVA [Suspect]
     Active Substance: OBETICHOLIC ACID
     Indication: PRIMARY BILIARY CHOLANGITIS
     Route: 048
     Dates: start: 20171117
  2. DEXYCYC MONA [Concomitant]
  3. GAVILYTEHG [Concomitant]
  4. URSODIOL. [Concomitant]
     Active Substance: URSODIOL
  5. OFLOXACIN. [Concomitant]
     Active Substance: OFLOXACIN
  6. DRAMAMINE [Suspect]
     Active Substance: DIMENHYDRINATE
  7. PREDNINOLONE [Concomitant]

REACTIONS (1)
  - Pruritus [None]
